FAERS Safety Report 24281378 (Version 1)
Quarter: 2024Q3

REPORT INFORMATION
  Report Type: Spontaneous
  Country: US (occurrence: US)
  Receive Date: 20240904
  Receipt Date: 20240904
  Transmission Date: 20241017
  Serious: No
  Sender: PUMA
  Company Number: US-PUMA BIOTECHNOLOGY, LTD.-2023-PUM-US002186

PATIENT

DRUGS (3)
  1. NERLYNX [Suspect]
     Active Substance: NERATINIB
     Indication: Breast cancer
     Dosage: 120 MG, DAILY
     Route: 048
     Dates: start: 20230220, end: 20230226
  2. NERLYNX [Suspect]
     Active Substance: NERATINIB
     Dosage: 160 MG, DAILY
     Route: 048
     Dates: start: 20230227, end: 20230305
  3. NERLYNX [Suspect]
     Active Substance: NERATINIB
     Dosage: 240 MG, DAILY
     Route: 048
     Dates: start: 20230306

REACTIONS (2)
  - Diarrhoea [Recovered/Resolved]
  - Drug titration [Unknown]

NARRATIVE: CASE EVENT DATE: 20230101
